FAERS Safety Report 18778978 (Version 1)
Quarter: 2021Q1

REPORT INFORMATION
  Report Type: Spontaneous
  Country: PR (occurrence: PR)
  Receive Date: 20210124
  Receipt Date: 20210124
  Transmission Date: 20210419
  Serious: Yes (Death, Other)
  Sender: FDA-Public Use
  Company Number: PR-AMGEN-PRISP2021009818

PATIENT
  Age: 83 Year
  Sex: Female

DRUGS (1)
  1. EVENITY [Suspect]
     Active Substance: ROMOSOZUMAB-AQQG
     Indication: PRODUCT USED FOR UNKNOWN INDICATION
     Dosage: UNK
     Route: 065
     Dates: start: 2020

REACTIONS (3)
  - Death [Fatal]
  - Raynaud^s phenomenon [Unknown]
  - Condition aggravated [Unknown]

NARRATIVE: CASE EVENT DATE: 202012
